FAERS Safety Report 4373615-7 (Version None)
Quarter: 2004Q1

REPORT INFORMATION
  Report Type: 
  Country: None (occurrence: None)
  Receive Date: 20040305
  Receipt Date: 20040203
  Transmission Date: 20041129
  Serious: Yes (Other)
  Sender: FDA-Public Use
  Company Number: 2004UW01831

PATIENT
  Age: 52 Year
  Sex: Female
  Weight: 97.0698 kg

DRUGS (10)
  1. CRESTOR [Suspect]
     Indication: BLOOD CHOLESTEROL INCREASED
     Dosage: 10 MG QD PO
     Route: 048
     Dates: start: 20031201
  2. PROZAC [Concomitant]
  3. NEURONTIN [Concomitant]
  4. LORTAB [Concomitant]
  5. SYNTHROID [Concomitant]
  6. TOPAMAX [Concomitant]
  7. MAXZIDE [Concomitant]
  8. CLONAZEPAM [Concomitant]
  9. CALCIUM [Concomitant]
  10. VITAMIN D [Concomitant]

REACTIONS (1)
  - VITAMIN D DEFICIENCY [None]
